FAERS Safety Report 23557642 (Version 7)
Quarter: 2024Q3

REPORT INFORMATION
  Report Type: Spontaneous
  Country: CA (occurrence: CA)
  Receive Date: 20240223
  Receipt Date: 20240919
  Transmission Date: 20241016
  Serious: Yes (Other)
  Sender: CELLTRION
  Company Number: CA-CELLTRION INC.-2023CA014424

PATIENT

DRUGS (11)
  1. INFLECTRA [Suspect]
     Active Substance: INFLIXIMAB-DYYB
     Indication: Crohn^s disease
     Dosage: 1 DF, HOSPITAL START, UNKNOWN DOSE
     Route: 042
     Dates: start: 20230704, end: 20230704
  2. INFLECTRA [Suspect]
     Active Substance: INFLIXIMAB-DYYB
     Dosage: 10 MG/KG, Q 2,6 WEEKS THEN EVERY 6 WEEKS.
     Route: 042
     Dates: start: 20230718
  3. INFLECTRA [Suspect]
     Active Substance: INFLIXIMAB-DYYB
     Dosage: 10 MG/KG, Q2,6 WEEKS THEN EVERY 6 WEEKS.
     Route: 042
     Dates: start: 20230815
  4. INFLECTRA [Suspect]
     Active Substance: INFLIXIMAB-DYYB
     Dosage: 10 MG/KG (870MG), Q2,6 WEEKS THEN EVERY 6 WEEKS
     Route: 042
     Dates: start: 20231010
  5. INFLECTRA [Suspect]
     Active Substance: INFLIXIMAB-DYYB
     Dosage: 10 MG/KG (870MG), Q2,6 WEEKS THEN EVERY 6 WEEKS
     Route: 042
     Dates: start: 20231121
  6. INFLECTRA [Suspect]
     Active Substance: INFLIXIMAB-DYYB
     Dosage: 900 MG, AFTER 12 WEEKS AND 1 DAY (PRESCRIBED EVERY 6 WEEKS)
     Route: 042
     Dates: start: 20240214
  7. INFLECTRA [Suspect]
     Active Substance: INFLIXIMAB-DYYB
     Dosage: 10 MG/KG (890 MG), Q2,6 WEEKS THEN EVERY 6 WEEKS
     Route: 042
     Dates: start: 20240326
  8. INFLECTRA [Suspect]
     Active Substance: INFLIXIMAB-DYYB
     Dosage: 10 MG/KG (850 MG) AFTER 6 WEEKS AND 2 DAYS, PRESCRIBED EVERY 6 WEEKS
     Route: 042
     Dates: start: 20240509
  9. INFLECTRA [Suspect]
     Active Substance: INFLIXIMAB-DYYB
     Dosage: 10 MG/KG, Q2,6 WEEKS THEN EVERY 6 WEEKS
     Route: 042
     Dates: start: 20240618
  10. INFLECTRA [Suspect]
     Active Substance: INFLIXIMAB-DYYB
     Dosage: 900 MG, EVERY 6 WEEKS
     Route: 042
     Dates: start: 20240730
  11. INFLECTRA [Suspect]
     Active Substance: INFLIXIMAB-DYYB
     Dosage: 900 MG, EVERY 6 WEEKS
     Route: 042
     Dates: start: 20240910

REACTIONS (8)
  - Condition aggravated [Recovering/Resolving]
  - Uveitis [Recovered/Resolved]
  - Arthralgia [Recovered/Resolved]
  - Defaecation urgency [Not Recovered/Not Resolved]
  - Off label use [Unknown]
  - Off label use [Unknown]
  - Intentional product use issue [Unknown]
  - Inappropriate schedule of product administration [Unknown]

NARRATIVE: CASE EVENT DATE: 20231010
